FAERS Safety Report 7323363-6 (Version None)
Quarter: 2011Q1

REPORT INFORMATION
  Report Type: 
  Country: None (occurrence: None)
  Receive Date: 20110301
  Receipt Date: 20110222
  Transmission Date: 20110831
  Serious: Yes (Death, Hospitalization, Other)
  Sender: FDA-Public Use
  Company Number: FR-ELI_LILLY_AND_COMPANY-FR201004001416

PATIENT
  Sex: Female

DRUGS (10)
  1. FORTEO [Suspect]
     Indication: OSTEOPOROSIS
     Dosage: 20 UG, DAILY (1/D)
     Route: 058
     Dates: start: 20090407, end: 20100101
  2. PROCORALAN [Concomitant]
     Dosage: 0.5 D/F, DAILY (1/D)
     Route: 048
  3. KARDEGIC [Concomitant]
     Dosage: 75 MG, DAILY (1/D)
     Route: 048
  4. TAHOR [Concomitant]
     Dosage: 20 MG, DAILY (1/D)
     Route: 048
  5. MOPRAL [Concomitant]
     Dosage: 20 MG, DAILY (1/D)
     Route: 048
  6. EUPHYLLINE [Concomitant]
     Dosage: 300 MG, 2/D
     Route: 048
  7. VASTAREL [Concomitant]
     Dosage: 35 MG, 2/D
     Route: 048
  8. PLAVIX [Concomitant]
     Dosage: 1 D/F, DAILY (1/D)
     Route: 048
  9. ATACAND [Concomitant]
     Dosage: 8 MG, DAILY (1/D)
     Route: 048
  10. TRANXENE [Concomitant]
     Dosage: 5 MG, DAILY (1/D)
     Route: 048

REACTIONS (2)
  - BILE DUCT CANCER [None]
  - BILE DUCT STENOSIS [None]
